FAERS Safety Report 13027613 (Version 6)
Quarter: 2017Q1

REPORT INFORMATION
  Report Type: Report from Study
  Country: US (occurrence: US)
  Receive Date: 20161214
  Receipt Date: 20170206
  Transmission Date: 20170428
  Serious: Yes (Death, Hospitalization, Other)
  Sender: FDA-Public Use
  Company Number: US-JNJFOC-20161114402

PATIENT
  Age: 74 Year
  Sex: Male

DRUGS (3)
  1. IMBRUVICA [Suspect]
     Active Substance: IBRUTINIB
     Indication: CHRONIC LYMPHOCYTIC LEUKAEMIA
     Route: 048
     Dates: start: 20161013, end: 2016
  2. IMBRUVICA [Suspect]
     Active Substance: IBRUTINIB
     Indication: CHRONIC LYMPHOCYTIC LEUKAEMIA
     Route: 048
     Dates: start: 2016
  3. PHENERGAN [Concomitant]
     Active Substance: PROMETHAZINE HYDROCHLORIDE
     Indication: NAUSEA
     Dosage: HALF TABLET AT A TIME.
     Route: 065
     Dates: start: 2016

REACTIONS (21)
  - Skin exfoliation [Unknown]
  - Cardiac failure congestive [Fatal]
  - Pleural effusion [Unknown]
  - Diaphragmatic paralysis [Unknown]
  - Pulmonary function test decreased [Unknown]
  - Fatigue [Unknown]
  - Blood count abnormal [Unknown]
  - Nausea [Unknown]
  - Asthma [Unknown]
  - Pneumonia [Unknown]
  - Chronic obstructive pulmonary disease [Fatal]
  - Eructation [Unknown]
  - Skin discolouration [Unknown]
  - Constipation [Unknown]
  - Chronic lymphocytic leukaemia recurrent [Unknown]
  - Haemoglobin abnormal [Unknown]
  - Somnolence [Unknown]
  - Wheezing [Unknown]
  - Flatulence [Unknown]
  - Stomatitis [Unknown]
  - Cough [Unknown]

NARRATIVE: CASE EVENT DATE: 2016
